FAERS Safety Report 7479316-0 (Version None)
Quarter: 2011Q2

REPORT INFORMATION
  Report Type: 
  Country: None (occurrence: None)
  Receive Date: 20110513
  Receipt Date: 20110509
  Transmission Date: 20111010
  Serious: Yes (Death)
  Sender: FDA-Public Use
  Company Number: CN-PFIZER INC-2011099429

PATIENT
  Age: 63 Year
  Sex: Male

DRUGS (3)
  1. FLUOROURACIL [Concomitant]
     Dosage: UNK
  2. CAMPTOSAR [Suspect]
     Indication: RECTAL CANCER
     Dosage: UNK
  3. CALCIUM FOLINATE [Concomitant]

REACTIONS (2)
  - INTESTINAL FUNCTIONAL DISORDER [None]
  - DIARRHOEA [None]
